FAERS Safety Report 13946317 (Version 1)
Quarter: 2017Q3

REPORT INFORMATION
  Report Type: Report from Study
  Country: IE (occurrence: IE)
  Receive Date: 20170907
  Receipt Date: 20170907
  Transmission Date: 20171128
  Serious: Yes (Death, Other)
  Sender: FDA-Public Use
  Company Number: IE-AMGEN-IRLSL2017135372

PATIENT
  Age: 66 Year
  Sex: Male

DRUGS (14)
  1. ISOMEL [Concomitant]
     Dosage: 60 MG, QD
  2. ARTELAC [Concomitant]
     Active Substance: HYPROMELLOSES
     Dosage: 10 MG, BID
  3. LERCANIDIPINE [Concomitant]
     Active Substance: LERCANIDIPINE
     Dosage: 10 MG, QD
  4. LIPITOR [Concomitant]
     Active Substance: ATORVASTATIN CALCIUM
     Dosage: 80 MG, QD
  5. WARFARIN [Concomitant]
     Active Substance: WARFARIN
     Dosage: 4 MG, QD
  6. ARANESP [Suspect]
     Active Substance: DARBEPOETIN ALFA
     Indication: NEPHROPATHY
     Dosage: 30 MUG, Q2WK
     Route: 058
     Dates: start: 20170222
  7. TRITACE [Concomitant]
     Active Substance: RAMIPRIL
     Dosage: 5 MG, QD
  8. ALLOPURINOL. [Concomitant]
     Active Substance: ALLOPURINOL
     Dosage: 300 MG, QD
  9. FRUSIDE [Concomitant]
     Dosage: 40 MG, QD
  10. KEPPRA [Concomitant]
     Active Substance: LEVETIRACETAM
     Dosage: 250 MG, BID
  11. NEBIVOLOL. [Concomitant]
     Active Substance: NEBIVOLOL
     Dosage: 5 MG, QD
  12. PROTIUM [Concomitant]
     Dosage: 40 MG, QD
  13. ASPIRIN. [Concomitant]
     Active Substance: ASPIRIN
     Dosage: 75 MG, QD
  14. DIAMICRON [Concomitant]
     Active Substance: GLICLAZIDE
     Dosage: 30 MG, BID

REACTIONS (1)
  - Death [Fatal]
